FAERS Safety Report 6366393-3 (Version None)
Quarter: 2009Q3

REPORT INFORMATION
  Report Type: 
  Country: None (occurrence: None)
  Receive Date: 20090921
  Receipt Date: 20090909
  Transmission Date: 20100115
  Serious: Yes (Life-Threatening)
  Sender: FDA-Public Use
  Company Number: JP-ROCHE-451189

PATIENT
  Sex: Male

DRUGS (9)
  1. ANEXATE [Suspect]
     Indication: GASTROINTESTINAL ULCER HAEMORRHAGE
     Route: 042
     Dates: start: 20060425, end: 20060425
  2. DORMICUM (INJ) [Suspect]
     Indication: GASTROINTESTINAL ULCER HAEMORRHAGE
     Dosage: ADMINISTERED OVER 30 SECONDS, DILUTED IN SALINE
     Route: 042
     Dates: start: 20060425, end: 20060425
  3. OMEPRAL [Concomitant]
     Indication: GASTROINTESTINAL ULCER HAEMORRHAGE
     Dates: start: 20060417, end: 20060420
  4. OMEPRAL [Concomitant]
     Dates: start: 20060425, end: 20060428
  5. ADALAT [Concomitant]
     Route: 048
  6. AMLODIPINE [Concomitant]
     Route: 048
  7. MICARDIS [Concomitant]
     Route: 048
  8. ZYLORIC [Concomitant]
     Route: 048
  9. GASTER [Concomitant]
     Route: 048

REACTIONS (1)
  - HYPERTHERMIA MALIGNANT [None]
